FAERS Safety Report 4847337-X (Version None)
Quarter: 2005Q4

REPORT INFORMATION
  Report Type: 
  Country: None (occurrence: None)
  Receive Date: 20051207
  Receipt Date: 20050627
  Transmission Date: 20060501
  Serious: Yes (Disabling, Other)
  Sender: FDA-Public Use
  Company Number: JP-SANOFI-SYNTHELABO-F01200501120

PATIENT
  Age: 69 Year
  Sex: Female
  Weight: 49 kg

DRUGS (3)
  1. OXALIPLATIN [Suspect]
     Indication: RECTAL CANCER
     Dosage: UNK
     Route: 042
     Dates: start: 20050520, end: 20050520
  2. FLUOROURACIL [Suspect]
     Dosage: 500 MG (367.6 MG/M2) IV BOLUS THEN 750 MG (551.5 MG/M2) IV CONTINUOUS INFUSION DAYS 1+2, Q2W
     Route: 042
     Dates: start: 20050520, end: 20050521
  3. CALCIUM LEVOFOLINATE [Suspect]
     Route: 042
     Dates: start: 20050520, end: 20050521

REACTIONS (4)
  - HAEMOGLOBIN DECREASED [None]
  - HEPATIC ENCEPHALOPATHY [None]
  - MALIGNANT NEOPLASM PROGRESSION [None]
  - METASTASES TO LIVER [None]
